FAERS Safety Report 19785382 (Version 4)
Quarter: 2025Q3

REPORT INFORMATION
  Report Type: Spontaneous
  Country: US (occurrence: US)
  Receive Date: 20210903
  Receipt Date: 20250926
  Transmission Date: 20251020
  Serious: Yes (Hospitalization, Other)
  Sender: PFIZER
  Company Number: US-PFIZER INC-202101089818

PATIENT
  Age: 60 Year
  Sex: Female

DRUGS (7)
  1. XELJANZ XR [Suspect]
     Active Substance: TOFACITINIB CITRATE
     Indication: Rheumatoid arthritis
     Dates: start: 2020
  2. XELJANZ XR [Suspect]
     Active Substance: TOFACITINIB CITRATE
     Indication: Psoriatic arthropathy
     Dosage: 11 MG, 1X/DAY
     Route: 048
     Dates: start: 20210812
  3. XELJANZ XR [Suspect]
     Active Substance: TOFACITINIB CITRATE
     Dosage: 11 MG, 1X/DAY
     Route: 048
     Dates: start: 2021
  4. XELJANZ XR [Suspect]
     Active Substance: TOFACITINIB CITRATE
     Dosage: 11 MG, 1X/DAY
     Route: 048
  5. GABAPENTIN [Concomitant]
     Active Substance: GABAPENTIN
  6. HYDROXYCHLOROQUINE SULFATE [Concomitant]
     Active Substance: HYDROXYCHLOROQUINE SULFATE
  7. ARAVA [Concomitant]
     Active Substance: LEFLUNOMIDE

REACTIONS (12)
  - Heat stroke [Recovering/Resolving]
  - Dehydration [Recovering/Resolving]
  - Pain [Recovering/Resolving]
  - Gait inability [Recovering/Resolving]
  - Foot deformity [Recovering/Resolving]
  - Cerebrovascular accident [Unknown]
  - Off label use [Unknown]
  - Intentional dose omission [Unknown]
  - Fatigue [Unknown]
  - Road traffic accident [Unknown]
  - Muscle strain [Unknown]
  - Inflammation [Unknown]

NARRATIVE: CASE EVENT DATE: 20210901
